FAERS Safety Report 19645234 (Version 1)
Quarter: 2021Q3

REPORT INFORMATION
  Report Type: Spontaneous
  Country: GB (occurrence: GB)
  Receive Date: 20210802
  Receipt Date: 20210802
  Transmission Date: 20211014
  Serious: Yes (Life-Threatening, Hospitalization, Disabling)
  Sender: FDA-Public Use
  Company Number: GB-BEH-2021134297

PATIENT
  Age: 50 Year
  Sex: Male
  Weight: 64 kg

DRUGS (2)
  1. ANTI?D IMMUNOGLOBULIN (INN) [Suspect]
     Active Substance: HUMAN RHO(D) IMMUNE GLOBULIN
     Indication: PRODUCT USED FOR UNKNOWN INDICATION
     Route: 065
  2. IBUPROFEN. [Concomitant]
     Active Substance: IBUPROFEN
     Indication: ARTHRITIS
     Dosage: 200 MILLIGRAM, BID
     Route: 065

REACTIONS (3)
  - Diabetes mellitus [Not Recovered/Not Resolved]
  - Weight decreased [Not Recovered/Not Resolved]
  - Chills [Recovering/Resolving]

NARRATIVE: CASE EVENT DATE: 20210501
